FAERS Safety Report 25225439 (Version 4)
Quarter: 2025Q3

REPORT INFORMATION
  Report Type: Spontaneous
  Country: CO (occurrence: CO)
  Receive Date: 20250422
  Receipt Date: 20250818
  Transmission Date: 20251021
  Serious: No
  Sender: PFIZER
  Company Number: CO-PFIZER INC-202500079793

PATIENT
  Sex: Male
  Weight: 35 kg

DRUGS (1)
  1. GENOTROPIN [Suspect]
     Active Substance: SOMATROPIN
     Indication: Short stature
     Dosage: 1.2 MG, DAILY
     Route: 058
     Dates: start: 20250401, end: 20250420

REACTIONS (5)
  - Inflammation [Unknown]
  - Device information output issue [Unknown]
  - Device mechanical issue [Unknown]
  - Product communication issue [Unknown]
  - Off label use [Unknown]
